FAERS Safety Report 9241598 (Version 2)
Quarter: 2013Q2

REPORT INFORMATION
  Report Type: Spontaneous
  Country: US (occurrence: US)
  Receive Date: 20130419
  Receipt Date: 20130521
  Transmission Date: 20140414
  Serious: No
  Sender: FDA-Public Use
  Company Number: US-009507513-1304USA004646

PATIENT
  Age: 56 Year
  Sex: Female
  Weight: 54.42 kg

DRUGS (1)
  1. ZEGERID OTC CAPSULES [Suspect]
     Indication: BARRETT^S OESOPHAGUS
     Dosage: 20 MG, QD
     Route: 048
     Dates: start: 20130329

REACTIONS (4)
  - Throat irritation [Recovered/Resolved]
  - Laryngeal pain [Recovered/Resolved]
  - Oral pain [Recovered/Resolved]
  - Vulvovaginal erythema [Recovered/Resolved]
